FAERS Safety Report 7443727-X (Version None)
Quarter: 2011Q2

REPORT INFORMATION
  Report Type: 
  Country: None (occurrence: None)
  Receive Date: 20110428
  Receipt Date: 20110421
  Transmission Date: 20111010
  Serious: Yes (Other)
  Sender: FDA-Public Use
  Company Number: US-AMGEN-USASP2011021033

PATIENT
  Sex: Female

DRUGS (2)
  1. ENBREL [Suspect]
     Indication: RHEUMATOID ARTHRITIS
     Dosage: UNK, UNK
     Dates: start: 20110215
  2. TREXALL [Concomitant]

REACTIONS (3)
  - DEPRESSION [None]
  - WHITE BLOOD CELL COUNT DECREASED [None]
  - RHEUMATOID ARTHRITIS [None]
